FAERS Safety Report 17832314 (Version 1)
Quarter: 2020Q2

REPORT INFORMATION
  Report Type: Report from Study
  Country: GB (occurrence: GB)
  Receive Date: 20200528
  Receipt Date: 20200528
  Transmission Date: 20200714
  Serious: Yes (Death)
  Sender: FDA-Public Use
  Company Number: GB-BAUSCH-BL-2020-015551

PATIENT
  Age: 72 Year
  Sex: Male

DRUGS (1)
  1. KYNTHEUM [Suspect]
     Active Substance: BRODALUMAB
     Indication: PSORIASIS
     Dosage: 210 MG AT WEEK 0, 1, 2, AND THEN EVERY 2 WEEKS
     Route: 058
     Dates: start: 20191216

REACTIONS (1)
  - Death [Fatal]
